FAERS Safety Report 12594786 (Version 1)
Quarter: 2016Q3

REPORT INFORMATION
  Report Type: Spontaneous
  Country: US (occurrence: US)
  Receive Date: 20160726
  Receipt Date: 20160726
  Transmission Date: 20161109
  Serious: No
  Sender: FDA-Public Use
  Company Number: US-UNITED THERAPEUTICS-UNT-2016-004077

PATIENT
  Sex: Male
  Weight: 87.75 kg

DRUGS (1)
  1. TYVASO [Suspect]
     Active Substance: TREPROSTINIL
     Indication: PULMONARY HYPERTENSION
     Dosage: 18-54 MICROGRAMS, QID
     Dates: start: 20160223

REACTIONS (3)
  - Tongue disorder [Recovering/Resolving]
  - Rash pruritic [Recovering/Resolving]
  - Oedema peripheral [Recovering/Resolving]
